FAERS Safety Report 25059877 (Version 1)
Quarter: 2025Q1

REPORT INFORMATION
  Report Type: Spontaneous
  Country: US (occurrence: US)
  Receive Date: 20250310
  Receipt Date: 20250310
  Transmission Date: 20250409
  Serious: No
  Sender: PFIZER
  Company Number: US-PFIZER INC-PV202500028711

PATIENT
  Age: 61 Year
  Sex: Female

DRUGS (10)
  1. XELJANZ [Suspect]
     Active Substance: TOFACITINIB CITRATE
  2. PREDNISONE [Concomitant]
     Active Substance: PREDNISONE
  3. ACTEMRA [Concomitant]
     Active Substance: TOCILIZUMAB
  4. NAPROXEN [Concomitant]
     Active Substance: NAPROXEN
  5. AMOXICILLIN [Concomitant]
     Active Substance: AMOXICILLIN
  6. ACETAMINOPHEN [Concomitant]
     Active Substance: ACETAMINOPHEN
  7. DUEXIS [Concomitant]
     Active Substance: FAMOTIDINE\IBUPROFEN
  8. RAYOS [Concomitant]
     Active Substance: PREDNISONE
  9. COLCHICINE [Concomitant]
     Active Substance: COLCHICINE
  10. SULFASALAZINE [Concomitant]
     Active Substance: SULFASALAZINE

REACTIONS (1)
  - Treatment failure [Unknown]
